FAERS Safety Report 21302895 (Version 1)
Quarter: 2022Q3

REPORT INFORMATION
  Report Type: Report from Study
  Country: JP (occurrence: JP)
  Receive Date: 20220907
  Receipt Date: 20220907
  Transmission Date: 20221027
  Serious: Yes (Other)
  Sender: FDA-Public Use
  Company Number: JP-PFIZER INC-PV202200050138

PATIENT

DRUGS (2)
  1. IRINOTECAN HYDROCHLORIDE [Suspect]
     Active Substance: IRINOTECAN HYDROCHLORIDE
     Indication: Non-small cell lung cancer
     Dosage: ON DAYS 1 AND 8 OF A 21-DAY CYCLE
  2. TS-1 [Suspect]
     Active Substance: GIMERACIL\OTERACIL\TEGAFUR
     Indication: Non-small cell lung cancer
     Dosage: ON DAYS 1-14 OF A 21-DAY CYCLE

REACTIONS (3)
  - Febrile neutropenia [Unknown]
  - Diarrhoea [Unknown]
  - Decreased appetite [Unknown]
